FAERS Safety Report 6720376-X (Version None)
Quarter: 2010Q2

REPORT INFORMATION
  Report Type: 
  Country: None (occurrence: None)
  Receive Date: 20100511
  Receipt Date: 20100505
  Transmission Date: 20101027
  Serious: Yes (Hospitalization)
  Sender: FDA-Public Use
  Company Number: AT-ABBOTT-10P-009-0642435-00

PATIENT
  Age: 65 Year
  Sex: Male
  Weight: 92.5 kg

DRUGS (2)
  1. ZEMPLAR [Suspect]
     Indication: HYPERPARATHYROIDISM
     Dates: start: 20090501
  2. UNASYN [Concomitant]
     Indication: DRUG USE FOR UNKNOWN INDICATION
     Dosage: DURING EACH DIALYSIS
     Dates: start: 20090810, end: 20090930

REACTIONS (2)
  - MUSCLE ABSCESS [None]
  - STAPHYLOCOCCAL SEPSIS [None]
